FAERS Safety Report 4805804-9 (Version None)
Quarter: 2005Q4

REPORT INFORMATION
  Report Type: 
  Country: None (occurrence: None)
  Receive Date: 20051019
  Receipt Date: 20051005
  Transmission Date: 20060501
  Serious: Yes (Death)
  Sender: FDA-Public Use
  Company Number: 6128

PATIENT
  Age: 38 Year
  Sex: Female

DRUGS (1)
  1. NAPROXEN [Suspect]
     Dosage: ONE TABLET TWICE DAILY WITH FOOD
     Dates: start: 19971229, end: 19971221

REACTIONS (2)
  - SUDDEN DEATH [None]
  - THROMBOTIC THROMBOCYTOPENIC PURPURA [None]
